FAERS Safety Report 7603392-5 (Version None)
Quarter: 2011Q3

REPORT INFORMATION
  Report Type: 
  Country: None (occurrence: None)
  Receive Date: 20110712
  Receipt Date: 20110711
  Transmission Date: 20111222
  Serious: Yes (Life-Threatening, Hospitalization, Other)
  Sender: FDA-Public Use
  Company Number: PHHY2011US40239

PATIENT
  Sex: Female

DRUGS (6)
  1. TASIGNA [Suspect]
     Dosage: 200 MG, BID
     Route: 048
  2. ALPROSTADIL [Concomitant]
  3. ZOCOR [Concomitant]
  4. TASIGNA [Suspect]
     Indication: CHRONIC MYELOID LEUKAEMIA
     Dosage: 200 MG, BID
     Route: 048
     Dates: start: 20100129
  5. METOPROLOL TARTRATE [Concomitant]
  6. LISINOPRIL [Concomitant]

REACTIONS (4)
  - OVARIAN CANCER STAGE III [None]
  - ABDOMINAL DISTENSION [None]
  - OVARIAN CANCER [None]
  - NEOPLASM MALIGNANT [None]
